FAERS Safety Report 5065387-8 (Version None)
Quarter: 2006Q3

REPORT INFORMATION
  Report Type: 
  Country: None (occurrence: None)
  Receive Date: 20060707
  Receipt Date: 20060106
  Transmission Date: 20061208
  Serious: Yes (Hospitalization)
  Sender: FDA-Public Use
  Company Number: SUS1-2006-00059

PATIENT
  Age: 29 Year
  Sex: Male

DRUGS (14)
  1. PENTASA [Suspect]
     Indication: CROHN'S DISEASE
     Dosage: SEE IMAGE
     Route: 048
     Dates: start: 19980602, end: 19980608
  2. PENTASA [Suspect]
     Indication: CROHN'S DISEASE
     Dosage: SEE IMAGE
     Route: 048
     Dates: start: 19980623, end: 19980625
  3. PIPERILLINE(PIPERACILLIN SODIUM) [Suspect]
     Indication: SEPSIS
     Dosage: INTRAVENOUS
     Route: 042
     Dates: start: 19980602, end: 19980610
  4. NETROMYCIN [Suspect]
     Indication: SEPSIS
     Dosage: 400 MG DAILY, INTRAVENOUS
     Route: 042
     Dates: start: 19980602, end: 19980605
  5. SMECTITE (SMECTITE) [Concomitant]
  6. PHLOROGLUCINOL (PHLOROGLUCINOL) [Concomitant]
  7. SMECTA /01447201/(VANILLIN, SACCHARIN SODIUM, GLUCOSE MONOHYDRATE, SME [Concomitant]
  8. SPASFON (PHLOROGLUCINOL, TRIMETHYLPHLOROGLUCINOL) [Concomitant]
  9. DEBRIDAT /00465202/ (TRIMEBUTINE MALEATE) [Concomitant]
  10. OFLOXACIN [Concomitant]
  11. FLAGYL /00012501/ (METRONIDAZOLE) [Concomitant]
  12. BACTISUBTIL (BACILLUS SUBTILIS) [Concomitant]
  13. DI-ANTALVIC /00220901/(DEXTROPROPOXYPHENE HYDROCHLORIDE) [Concomitant]
  14. OMEPRAZOLE [Concomitant]

REACTIONS (1)
  - PANCREATITIS ACUTE [None]
